FAERS Safety Report 7633949-7 (Version None)
Quarter: 2011Q3

REPORT INFORMATION
  Report Type: 
  Country: None (occurrence: None)
  Receive Date: 20110725
  Receipt Date: 20110722
  Transmission Date: 20111222
  Serious: Yes (Hospitalization)
  Sender: FDA-Public Use
  Company Number: SE-BRISTOL-MYERS SQUIBB COMPANY-15421951

PATIENT
  Age: 63 Year
  Sex: Male

DRUGS (6)
  1. BLINDED: SAXAGLIPTIN [Suspect]
     Indication: TYPE 2 DIABETES MELLITUS
     Dosage: ONGOING
     Dates: start: 20100831
  2. METFORMIN HCL [Suspect]
     Indication: DIABETES MELLITUS
  3. NITRATES [Concomitant]
  4. PLACEBO [Suspect]
     Indication: TYPE 2 DIABETES MELLITUS
     Dates: start: 20100831
  5. RAMIPRIL [Suspect]
     Dates: end: 20101110
  6. ASPIRIN [Concomitant]
     Dosage: MORE THAN 100 MG ALSO TAKEN ={100MG

REACTIONS (1)
  - ANGIOEDEMA [None]
